FAERS Safety Report 7122496-7 (Version None)
Quarter: 2010Q4

REPORT INFORMATION
  Report Type: 
  Country: None (occurrence: None)
  Receive Date: 20101122
  Receipt Date: 20101122
  Transmission Date: 20110411
  Serious: Yes (Hospitalization)
  Sender: FDA-Public Use
  Company Number: None

PATIENT
  Age: 68 Year
  Sex: Male
  Weight: 77 kg

DRUGS (21)
  1. CETUXIMAB [Suspect]
     Indication: HEAD AND NECK CANCER
     Dosage: 400 MG/M2, LOADING, IV ; 250 MG/M2, IV
     Route: 042
     Dates: start: 20101004, end: 20101115
  2. CETUXIMAB [Suspect]
     Indication: HEAD AND NECK CANCER
     Dosage: 400 MG/M2, LOADING, IV ; 250 MG/M2, IV
     Route: 042
     Dates: start: 20100927
  3. LANTUS [Concomitant]
  4. NOVOLOG [Concomitant]
  5. HUMULIN R [Concomitant]
  6. PROGRAF [Concomitant]
  7. CELLCEPT [Concomitant]
  8. METOPROLOL [Concomitant]
  9. AMLODIPINE [Concomitant]
  10. CRESTOR [Concomitant]
  11. RAGLAN [Concomitant]
  12. FENTANYL-100 [Concomitant]
  13. MINOCYCLINE HCL [Concomitant]
  14. CHLORHEXIDINE GLUCONATE [Concomitant]
  15. TRAMADOL [Concomitant]
  16. OXYCODONE [Concomitant]
  17. NASACORT [Concomitant]
  18. BIOTENE MOUTH SPRAY [Concomitant]
  19. ZOLPIDEM [Concomitant]
  20. XENADERM OINTMENT [Concomitant]
  21. BACITRACIN TOPICAL OINTMENT [Concomitant]

REACTIONS (9)
  - DYSPNOEA [None]
  - HYPOXIA [None]
  - METASTASES TO CHEST WALL [None]
  - METASTASES TO LUNG [None]
  - METASTASES TO LYMPH NODES [None]
  - PNEUMONIA [None]
  - PRODUCTIVE COUGH [None]
  - PULMONARY OEDEMA [None]
  - PYREXIA [None]
